FAERS Safety Report 22647293 (Version 1)
Quarter: 2023Q2

REPORT INFORMATION
  Report Type: Spontaneous
  Country: US (occurrence: US)
  Receive Date: 20230627
  Receipt Date: 20230627
  Transmission Date: 20230721
  Serious: No
  Sender: FDA-Public Use
  Company Number: US-002147023-NVSC2023US146527

PATIENT
  Sex: Female

DRUGS (2)
  1. LEQVIO [Suspect]
     Active Substance: INCLISIRAN SODIUM
     Indication: Low density lipoprotein increased
     Dosage: 1.5 ML (INITIAL DOSE, 3 MONTH DOSE, EVERY 6 MONTHS THEREAFTER)
     Route: 058
     Dates: start: 20230414, end: 20230414
  2. LEQVIO [Suspect]
     Active Substance: INCLISIRAN SODIUM
     Indication: Blood cholesterol decreased

REACTIONS (1)
  - Muscle spasms [Unknown]
